FAERS Safety Report 12768988 (Version 1)
Quarter: 2016Q3

REPORT INFORMATION
  Report Type: Spontaneous
  Country: US (occurrence: US)
  Receive Date: 20160921
  Receipt Date: 20160921
  Transmission Date: 20161109
  Serious: No
  Sender: FDA-Public Use
  Company Number: US-JAZZ-2016-US-010315

PATIENT
  Age: 48 Year
  Sex: Female

DRUGS (21)
  1. ACETYL L-CARNITINE [Concomitant]
     Active Substance: ACETYLCARNITINE
  2. HYDROCODONE / IBUPROFEN [Concomitant]
     Active Substance: HYDROCODONE BITARTRATE\IBUPROFEN
  3. MEDROL [Concomitant]
     Active Substance: METHYLPREDNISOLONE
  4. ALA [Concomitant]
  5. XYREM [Suspect]
     Active Substance: SODIUM OXYBATE
     Indication: NARCOLEPSY
     Dosage: 4.5 G, BID
     Route: 048
     Dates: start: 201012
  6. FLUCONAZOLE. [Concomitant]
     Active Substance: FLUCONAZOLE
  7. UBIQUINOL [Concomitant]
     Active Substance: UBIQUINOL
  8. MUCINEX D ER [Concomitant]
  9. PROGESTERONE. [Concomitant]
     Active Substance: PROGESTERONE
  10. ASPIRIN. [Concomitant]
     Active Substance: ASPIRIN
  11. ZOFRAN [Concomitant]
     Active Substance: ONDANSETRON HYDROCHLORIDE
  12. CYANOCOBALAMIN. [Concomitant]
     Active Substance: CYANOCOBALAMIN
  13. VIVELLE-DOT [Concomitant]
     Active Substance: ESTRADIOL
  14. VYVANSE [Concomitant]
     Active Substance: LISDEXAMFETAMINE DIMESYLATE
  15. ALBUTEROL SULFATE HFA [Concomitant]
     Active Substance: ALBUTEROL SULFATE
  16. ADDERALL [Concomitant]
     Active Substance: AMPHETAMINE ASPARTATE\AMPHETAMINE SULFATE\DEXTROAMPHETAMINE SACCHARATE\DEXTROAMPHETAMINE SULFATE
  17. NIACIN ER [Concomitant]
     Active Substance: NIACIN
  18. CHROMIUM [Concomitant]
     Active Substance: CHROMIC CHLORIDE\CHROMIUM
  19. FIORINAL [Concomitant]
     Active Substance: ASPIRIN\BUTALBITAL\CAFFEINE
  20. JUICED GINGER [Concomitant]
  21. VITAMIN D3 [Concomitant]
     Active Substance: CHOLECALCIFEROL

REACTIONS (1)
  - Tooth disorder [Recovered/Resolved]

NARRATIVE: CASE EVENT DATE: 20150601
